FAERS Safety Report 19246656 (Version 3)
Quarter: 2021Q3

REPORT INFORMATION
  Report Type: Spontaneous
  Country: US (occurrence: US)
  Receive Date: 20210512
  Receipt Date: 20210804
  Transmission Date: 20211014
  Serious: Yes (Other)
  Sender: FDA-Public Use
  Company Number: US-BEH-2021131435

PATIENT
  Sex: Female

DRUGS (20)
  1. NORCO [Concomitant]
     Active Substance: ACETAMINOPHEN\HYDROCODONE BITARTRATE
  2. DEXILANT [Concomitant]
     Active Substance: DEXLANSOPRAZOLE
  3. BELSOMRA [Concomitant]
     Active Substance: SUVOREXANT
  4. PROAIR HFA [Concomitant]
     Active Substance: ALBUTEROL SULFATE
  5. ZANTAC [Concomitant]
     Active Substance: RANITIDINE HYDROCHLORIDE
  6. NATURE?THROID [Concomitant]
     Active Substance: THYROID, PORCINE
  7. LIDOCAINE. [Concomitant]
     Active Substance: LIDOCAINE
  8. BUSPIRONE HCL [Concomitant]
     Active Substance: BUSPIRONE HYDROCHLORIDE
  9. FENTANYL. [Concomitant]
     Active Substance: FENTANYL
  10. ZANAFLEX [Concomitant]
     Active Substance: TIZANIDINE HYDROCHLORIDE
  11. CLINDAMYCIN HCL [Concomitant]
     Active Substance: CLINDAMYCIN HYDROCHLORIDE
  12. INDERAL LA [Concomitant]
     Active Substance: PROPRANOLOL HYDROCHLORIDE
  13. HIZENTRA [Suspect]
     Active Substance: HUMAN IMMUNOGLOBULIN G
     Indication: SELECTIVE IGG SUBCLASS DEFICIENCY
     Dosage: 6 GRAM, QW
     Route: 058
     Dates: start: 201910
  14. ABILIFY [Concomitant]
     Active Substance: ARIPIPRAZOLE
  15. PRILOSEC [Concomitant]
     Active Substance: OMEPRAZOLE MAGNESIUM
  16. MOBIC [Concomitant]
     Active Substance: MELOXICAM
  17. KLONOPIN [Concomitant]
     Active Substance: CLONAZEPAM
  18. VITAMIN D3 [Concomitant]
     Active Substance: CHOLECALCIFEROL
  19. ZOLOFT [Concomitant]
     Active Substance: SERTRALINE HYDROCHLORIDE
  20. HIZENTRA [Suspect]
     Active Substance: HUMAN IMMUNOGLOBULIN G
     Dosage: 6 GRAM, QW
     Route: 058

REACTIONS (17)
  - Insomnia [Unknown]
  - Neuropathy peripheral [Unknown]
  - Bone cyst [Unknown]
  - Arthralgia [Unknown]
  - Nausea [Unknown]
  - Gait disturbance [Unknown]
  - Feeling abnormal [Unknown]
  - Balance disorder [Unknown]
  - Arthropathy [Unknown]
  - Dizziness [Unknown]
  - Fall [Unknown]
  - No adverse event [Unknown]
  - Therapy interrupted [Unknown]
  - Pain [Unknown]
  - Joint dislocation [Unknown]
  - Exostosis [Unknown]
  - Dysstasia [Unknown]
